FAERS Safety Report 20973085 (Version 1)
Quarter: 2022Q2

REPORT INFORMATION
  Report Type: Spontaneous
  Country: IT (occurrence: IT)
  Receive Date: 20220617
  Receipt Date: 20220617
  Transmission Date: 20220721
  Serious: Yes (Hospitalization)
  Sender: FDA-Public Use
  Company Number: IT-LUPIN PHARMACEUTICALS INC.-2022-08708

PATIENT
  Age: 59 Year
  Sex: Female

DRUGS (10)
  1. LEVETIRACETAM [Suspect]
     Active Substance: LEVETIRACETAM
     Indication: Status epilepticus
     Dosage: UNK
     Route: 065
  2. LACOSAMIDE [Suspect]
     Active Substance: LACOSAMIDE
     Indication: Status epilepticus
     Dosage: UNK (DISCONTINUED)
     Route: 065
  3. VALPROIC ACID [Suspect]
     Active Substance: VALPROIC ACID
     Indication: Status epilepticus
     Dosage: UNK (DISCONTINUED)
     Route: 065
  4. PROPOFOL [Suspect]
     Active Substance: PROPOFOL
     Indication: Status epilepticus
     Dosage: UNK
     Route: 065
  5. NALOXONE [Concomitant]
     Active Substance: NALOXONE
     Indication: Toxicity to various agents
     Dosage: UNK
     Route: 065
  6. PIPERACILLIN SODIUM\TAZOBACTAM SODIUM [Concomitant]
     Active Substance: PIPERACILLIN SODIUM\TAZOBACTAM SODIUM
     Indication: Antibiotic therapy
     Dosage: UNK
     Route: 065
  7. HYDROXYUREA [Concomitant]
     Active Substance: HYDROXYUREA
     Indication: Sickle cell disease
     Dosage: UNK
     Route: 065
  8. HYDROXYUREA [Concomitant]
     Active Substance: HYDROXYUREA
     Dosage: 8.6 MILLIGRAM/KILOGRAM, QD
     Route: 065
  9. ASPIRIN [Concomitant]
     Active Substance: ASPIRIN
     Indication: Prophylaxis
     Dosage: 100 MG, QD
     Route: 065
  10. ASPIRIN [Concomitant]
     Active Substance: ASPIRIN
     Dosage: UNK REINTRODUCED AGAIN
     Route: 065

REACTIONS (1)
  - Drug ineffective [Unknown]
